FAERS Safety Report 5247719-0 (Version None)
Quarter: 2007Q1

REPORT INFORMATION
  Report Type: 
  Country: None (occurrence: None)
  Receive Date: 20070227
  Receipt Date: 20070221
  Transmission Date: 20070707
  Serious: Yes (Other)
  Sender: FDA-Public Use
  Company Number: US-ELI_LILLY_AND_COMPANY-US200702003639

PATIENT
  Sex: Female

DRUGS (6)
  1. LEXAPRO [Concomitant]
     Dates: end: 20061201
  2. LANTUS [Concomitant]
     Dosage: 10 U, EACH EVENING
  3. HUMULIN R [Suspect]
     Dosage: 3 U, 3/D
  4. CYMBALTA [Concomitant]
     Indication: DIABETIC NEUROPATHY
     Dosage: 30 MG, UNK
  5. CYMBALTA [Concomitant]
     Dosage: 60 MG, UNK
  6. HUMAN INSULIN (RDNA ORIGIN) [Suspect]

REACTIONS (5)
  - BLOOD GLUCOSE DECREASED [None]
  - HYPOGLYCAEMIA UNAWARENESS [None]
  - LOSS OF CONSCIOUSNESS [None]
  - MEMORY IMPAIRMENT [None]
  - ROAD TRAFFIC ACCIDENT [None]
